FAERS Safety Report 15008748 (Version 1)
Quarter: 2018Q2

REPORT INFORMATION
  Report Type: Spontaneous
  Country: US (occurrence: US)
  Receive Date: 20180521
  Receipt Date: 20180521
  Transmission Date: 20180711
  Serious: No
  Sender: FDA-Public Use
  Company Number: None

PATIENT
  Age: 66 Year
  Sex: Female

DRUGS (12)
  1. LEVOFLOXACIN. [Suspect]
     Active Substance: LEVOFLOXACIN
     Route: 048
  2. AMOXICILLIN/CLAVULANATE [Suspect]
     Active Substance: AMOXICILLIN\CLAVULANATE POTASSIUM
     Indication: INFECTION
     Dosage: ?          OTHER DOSE:875/125 MG;?
     Route: 048
     Dates: start: 20171122, end: 20171203
  3. LORAZEPAM. [Concomitant]
     Active Substance: LORAZEPAM
  4. ESCITALOPRAM [Concomitant]
     Active Substance: ESCITALOPRAM OXALATE
  5. ROSUVASTATIN. [Concomitant]
     Active Substance: ROSUVASTATIN
  6. HYDROCHLOROTHIAZIDE. [Concomitant]
     Active Substance: HYDROCHLOROTHIAZIDE
  7. ZOLPIDEM [Concomitant]
     Active Substance: ZOLPIDEM\ZOLPIDEM TARTRATE
  8. LOSARTAN. [Concomitant]
     Active Substance: LOSARTAN
  9. CALCIUM CARBONATE/VITAMIN D [Concomitant]
     Active Substance: CALCIUM CARBONATE\VITAMIN D
  10. CONJUGATED ESTROGENS [Concomitant]
     Active Substance: ESTROGENS, CONJUGATED
  11. PREDNISONE. [Concomitant]
     Active Substance: PREDNISONE
  12. BUDENOSIDE [Concomitant]
     Active Substance: BUDESONIDE

REACTIONS (10)
  - Fatigue [None]
  - Aspartate aminotransferase increased [None]
  - Decreased appetite [None]
  - Alanine aminotransferase increased [None]
  - Blood alkaline phosphatase increased [None]
  - Cough [None]
  - Laryngitis [None]
  - Asthenia [None]
  - Chromaturia [None]
  - Rash [None]

NARRATIVE: CASE EVENT DATE: 20170108
